FAERS Safety Report 8109815-X (Version None)
Quarter: 2012Q1

REPORT INFORMATION
  Report Type: 
  Country: None (occurrence: None)
  Receive Date: 20120202
  Receipt Date: 20120119
  Transmission Date: 20120608
  Serious: No
  Sender: FDA-Public Use
  Company Number: US-AMGEN-USASP2012004110

PATIENT
  Age: 66 Year
  Sex: Female

DRUGS (1)
  1. ENBREL [Suspect]
     Indication: RHEUMATOID ARTHRITIS
     Dosage: 50 MG, QWK
     Dates: start: 20111005

REACTIONS (5)
  - NAUSEA [None]
  - RASH ERYTHEMATOUS [None]
  - SUBCUTANEOUS ABSCESS [None]
  - DERMAL CYST [None]
  - DRUG HYPERSENSITIVITY [None]
